FAERS Safety Report 5392522-4 (Version None)
Quarter: 2007Q3

REPORT INFORMATION
  Report Type: 
  Country: None (occurrence: None)
  Receive Date: 20070720
  Receipt Date: 20070709
  Transmission Date: 20080115
  Serious: Yes (Other)
  Sender: FDA-Public Use
  Company Number: US-ELI_LILLY_AND_COMPANY-US200705006230

PATIENT
  Age: 29 Year
  Sex: Female

DRUGS (7)
  1. CYMBALTA [Suspect]
     Indication: BIPOLAR I DISORDER
     Dosage: 20 MG, UNK
     Dates: end: 20070530
  2. CYMBALTA [Suspect]
     Dosage: 60 MG, UNK
  3. LAMICTAL [Concomitant]
     Indication: BIPOLAR I DISORDER
     Dosage: 300 MG, UNK
     Dates: start: 20060706
  4. PROVIGIL [Concomitant]
     Indication: FATIGUE
     Dosage: 200 UNK, UNK
     Dates: start: 20070403, end: 20070515
  5. LANTUS [Concomitant]
  6. ACTOS [Concomitant]
     Dosage: 30 UNK, UNK
  7. ACTOS [Concomitant]
     Dosage: 60 UNK, 2/D

REACTIONS (2)
  - ABORTION INDUCED [None]
  - DRUG EXPOSURE DURING PREGNANCY [None]
